FAERS Safety Report 14547705 (Version 3)
Quarter: 2021Q1

REPORT INFORMATION
  Report Type: Report from Study
  Country: BR (occurrence: BR)
  Receive Date: 20180219
  Receipt Date: 20210222
  Transmission Date: 20210419
  Serious: Yes (Other)
  Sender: FDA-Public Use
  Company Number: PHHY2018BR023445

PATIENT
  Age: 66 Year
  Sex: Female
  Weight: 90 kg

DRUGS (10)
  1. COSENTYX [Suspect]
     Active Substance: SECUKINUMAB
     Dosage: UNK
     Route: 058
     Dates: start: 20180328
  2. COSENTYX [Suspect]
     Active Substance: SECUKINUMAB
     Dosage: UNK
     Route: 058
     Dates: start: 20180129
  3. SERTRALINE [Concomitant]
     Active Substance: SERTRALINE HYDROCHLORIDE
     Indication: DEPRESSION
     Dosage: 2 DF, QD
     Route: 048
  4. COSENTYX [Suspect]
     Active Substance: SECUKINUMAB
     Indication: PSORIASIS
     Dosage: 300 MG (2 APPLICATIONS ONCE A MONTH), UNK
     Route: 058
     Dates: start: 201710
  5. COSENTYX [Suspect]
     Active Substance: SECUKINUMAB
     Dosage: UNK
     Route: 065
     Dates: start: 20200110
  6. LOSARTAN. [Concomitant]
     Active Substance: LOSARTAN
     Indication: HYPERTENSION
     Dosage: 2 DF (50 MG), QD
     Route: 048
  7. PROPRANOLOL [Concomitant]
     Active Substance: PROPRANOLOL HYDROCHLORIDE
     Indication: TREMOR
     Dosage: 4 DF (40 MG), QD
     Route: 048
  8. COSENTYX [Suspect]
     Active Substance: SECUKINUMAB
     Dosage: UNK
     Route: 065
     Dates: start: 2017
  9. COSENTYX [Suspect]
     Active Substance: SECUKINUMAB
     Indication: PSORIATIC ARTHROPATHY
     Dosage: 300 MG, QMO
     Route: 058
     Dates: start: 20170920
  10. COSENTYX [Suspect]
     Active Substance: SECUKINUMAB
     Dosage: UNK
     Route: 058
     Dates: start: 20190828

REACTIONS (20)
  - Gait disturbance [Recovering/Resolving]
  - Allergic cough [Unknown]
  - Nervousness [Unknown]
  - Fall [Recovering/Resolving]
  - Rhinitis allergic [Unknown]
  - Dysphonia [Recovering/Resolving]
  - Inappropriate schedule of product administration [Unknown]
  - Hip fracture [Recovering/Resolving]
  - Malaise [Not Recovered/Not Resolved]
  - Fatigue [Not Recovered/Not Resolved]
  - Cough [Recovering/Resolving]
  - Blood calcium decreased [Unknown]
  - Psoriasis [Recovering/Resolving]
  - Pelvic fracture [Recovering/Resolving]
  - Mobility decreased [Recovering/Resolving]
  - Influenza [Recovering/Resolving]
  - Pain [Recovering/Resolving]
  - Memory impairment [Unknown]
  - Joint dislocation [Not Recovered/Not Resolved]
  - Body height decreased [Unknown]

NARRATIVE: CASE EVENT DATE: 201801
